FAERS Safety Report 7235843 (Version 5)
Quarter: 2015Q3

REPORT INFORMATION
  Report Type: Spontaneous
  Country: JP (occurrence: JP)
  Receive Date: 20100104
  Receipt Date: 20150911
  Transmission Date: 20151125
  Serious: Yes (Life-Threatening, Hospitalization)
  Sender: FDA-Public Use
  Company Number: JP-BAYER-200914844BYL

PATIENT
  Age: 70 Year
  Sex: Male
  Weight: 65 kg

DRUGS (11)
  1. BLOPRESS [Concomitant]
     Active Substance: CANDESARTAN CILEXETIL
     Dosage: 8 MG (DAILY DOSE), , ORAL
     Route: 048
  2. DECADRON [Concomitant]
     Active Substance: DEXAMETHASONE
     Dosage: 4 MG (DAILY DOSE), , ORAL
     Route: 048
     Dates: start: 20091202
  3. URSO [Concomitant]
     Active Substance: URSODIOL
     Dosage: 600 MG (DAILY DOSE), , ORAL
     Route: 048
     Dates: start: 20091109
  4. DEXAMETHASONE. [Concomitant]
     Active Substance: DEXAMETHASONE
     Indication: PYREXIA
     Dosage: DAILY DOSE 4 MG
  5. DEXAMETHASONE. [Concomitant]
     Active Substance: DEXAMETHASONE
     Indication: DECREASED APPETITE
  6. ZYLORIC [Concomitant]
     Active Substance: ALLOPURINOL
     Dosage: 200 MG (DAILY DOSE), , ORAL
     Route: 048
  7. MEVALOTIN [Concomitant]
     Active Substance: PRAVASTATIN SODIUM
     Dosage: 10 MG (DAILY DOSE), , ORAL
     Route: 048
  8. NEXAVAR [Suspect]
     Active Substance: SORAFENIB
     Indication: HEPATOCELLULAR CARCINOMA
     Dosage: 800 MG, QID
     Route: 048
     Dates: start: 20091127, end: 20091203
  9. LASIX [Concomitant]
     Active Substance: FUROSEMIDE
     Dosage: 20 MG (DAILY DOSE), , ORAL
     Route: 048
  10. HYPEN [Concomitant]
     Active Substance: ETODOLAC
     Dosage: 400 MG (DAILY DOSE), , ORAL
     Route: 048
     Dates: start: 20091126
  11. BAYASPIRIN [Concomitant]
     Active Substance: ASPIRIN
     Dosage: 100 MG (DAILY DOSE), , ORAL
     Route: 048

REACTIONS (8)
  - Tumour lysis syndrome [Recovering/Resolving]
  - Blood bilirubin increased [Recovering/Resolving]
  - Blood urea increased [Recovering/Resolving]
  - Pyrexia [None]
  - Acute kidney injury [Not Recovered/Not Resolved]
  - Aspartate aminotransferase increased [Recovering/Resolving]
  - Decreased appetite [None]
  - Hepatic function abnormal [Recovering/Resolving]

NARRATIVE: CASE EVENT DATE: 20091130
